FAERS Safety Report 12582342 (Version 1)
Quarter: 2016Q3

REPORT INFORMATION
  Report Type: Spontaneous
  Country: US (occurrence: None)
  Receive Date: 20160721
  Receipt Date: 20160721
  Transmission Date: 20161109
  Serious: Yes (Disabling)
  Sender: FDA-Public Use
  Company Number: None

PATIENT
  Age: 29 Year
  Sex: Female
  Weight: 47.63 kg

DRUGS (2)
  1. FLUTICASONE PROP 50MG SPRAY, 50MG [Suspect]
     Active Substance: FLUTICASONE PROPIONATE
     Indication: MULTIPLE ALLERGIES
     Dosage: 2 SPRAY(S)
     Route: 045
     Dates: start: 20160614, end: 20160719
  2. CHILDREN CLARITIN ALLERGY [Concomitant]
     Active Substance: LORATADINE

REACTIONS (3)
  - Dysgeusia [None]
  - Ageusia [None]
  - Anosmia [None]

NARRATIVE: CASE EVENT DATE: 20160720
